FAERS Safety Report 8048227-4 (Version None)
Quarter: 2012Q1

REPORT INFORMATION
  Report Type: 
  Country: None (occurrence: None)
  Receive Date: 20120113
  Receipt Date: 20120113
  Transmission Date: 20120608
  Serious: No
  Sender: FDA-Public Use
  Company Number: None

PATIENT
  Age: 35 Year
  Sex: Female

DRUGS (1)
  1. MACROBID [Suspect]
     Dates: start: 20090517, end: 20090519

REACTIONS (17)
  - HEPATIC FIBROSIS [None]
  - HIV INFECTION [None]
  - UNEVALUABLE EVENT [None]
  - ORAL DISORDER [None]
  - OROPHARYNGEAL PAIN [None]
  - VAGINAL LESION [None]
  - HEPATOMEGALY [None]
  - CONDITION AGGRAVATED [None]
  - ODYNOPHAGIA [None]
  - CHOLELITHIASIS [None]
  - CHOLESTATIC LIVER INJURY [None]
  - HEPATIC STEATOSIS [None]
  - SPLENOMEGALY [None]
  - HYPERSENSITIVITY [None]
  - ANTINUCLEAR ANTIBODY POSITIVE [None]
  - GENITAL PAIN [None]
  - CHOLESTASIS [None]
